FAERS Safety Report 23484800 (Version 1)
Quarter: 2024Q1

REPORT INFORMATION
  Report Type: Spontaneous
  Country: JP (occurrence: JP)
  Receive Date: 20240206
  Receipt Date: 20240206
  Transmission Date: 20240410
  Serious: Yes (Other)
  Sender: FDA-Public Use
  Company Number: JP-SANDOZ-SDZ2024JP009784

PATIENT
  Age: 26 Year
  Sex: Female

DRUGS (12)
  1. QUETIAPINE [Suspect]
     Active Substance: QUETIAPINE
     Indication: Autism spectrum disorder
     Dosage: UNK
     Route: 065
  2. QUETIAPINE [Suspect]
     Active Substance: QUETIAPINE
     Dosage: UNK
     Route: 065
  3. VALPROATE SODIUM [Suspect]
     Active Substance: VALPROATE SODIUM
     Indication: Autism spectrum disorder
     Dosage: UNK
     Route: 065
  4. CHLORPROMAZINE HYDROCHLORIDE [Concomitant]
     Active Substance: CHLORPROMAZINE HYDROCHLORIDE
     Indication: Autism spectrum disorder
     Dosage: UNK
     Route: 065
  5. CLOBAZAM [Concomitant]
     Active Substance: CLOBAZAM
     Indication: Partial seizures
     Dosage: UNK
     Route: 065
  6. LEVETIRACETAM [Concomitant]
     Active Substance: LEVETIRACETAM
     Indication: Partial seizures
     Dosage: UNK
     Route: 065
  7. PHENYTOIN [Concomitant]
     Active Substance: PHENYTOIN
     Indication: Partial seizures
     Dosage: UNK
     Route: 065
  8. RAMELTEON [Concomitant]
     Active Substance: RAMELTEON
     Indication: Autism spectrum disorder
     Dosage: UNK
     Route: 065
  9. RISPERIDONE [Concomitant]
     Active Substance: RISPERIDONE
     Indication: Autism spectrum disorder
     Dosage: UNK
     Route: 065
  10. SUVOREXANT [Concomitant]
     Active Substance: SUVOREXANT
     Indication: Autism spectrum disorder
     Dosage: UNK
     Route: 065
  11. TOPIRAMATE [Concomitant]
     Active Substance: TOPIRAMATE
     Indication: Autism spectrum disorder
     Dosage: UNK
     Route: 065
  12. ZONISAMIDE [Concomitant]
     Active Substance: ZONISAMIDE
     Indication: Partial seizures
     Dosage: UNK
     Route: 065

REACTIONS (1)
  - Central hypothyroidism [Recovered/Resolved]
